FAERS Safety Report 5296747-8 (Version None)
Quarter: 2007Q2

REPORT INFORMATION
  Report Type: 
  Country: None (occurrence: None)
  Receive Date: 20070413
  Receipt Date: 20070321
  Transmission Date: 20071010
  Serious: Yes (Hospitalization)
  Sender: FDA-Public Use
  Company Number: AU-MERCK-0703AUS00012

PATIENT
  Sex: Male

DRUGS (2)
  1. PROSCAR [Suspect]
     Indication: PROSTATE EXAMINATION ABNORMAL
     Route: 048
     Dates: start: 20070101, end: 20070201
  2. PROSCAR [Suspect]
     Route: 048
     Dates: start: 20070103, end: 20070101

REACTIONS (5)
  - ASTHMA [None]
  - DYSPNOEA [None]
  - INFLUENZA LIKE ILLNESS [None]
  - PYREXIA [None]
  - URTICARIA [None]
